FAERS Safety Report 9217094 (Version 7)
Quarter: 2013Q3

REPORT INFORMATION
  Report Type: Spontaneous
  Country: US (occurrence: US)
  Receive Date: 20130408
  Receipt Date: 20130802
  Transmission Date: 20140515
  Serious: Yes (Hospitalization, Other)
  Sender: FDA-Public Use
  Company Number: US-PFIZER INC-2013108793

PATIENT
  Age: 45 Year
  Sex: Male
  Weight: 77.55 kg

DRUGS (23)
  1. RAPAMUNE [Suspect]
     Indication: STEM CELL TRANSPLANT
     Dosage: 3 MG (2MG TABLET AND 1 MG TABLET ), 1X/DAY
     Route: 048
     Dates: start: 20130206
  2. RAPAMUNE [Suspect]
     Indication: SKIN GRAFT
     Dosage: 0.5 MG, 1X/DAY
     Route: 048
     Dates: end: 20130326
  3. PROGRAF [Suspect]
     Indication: STEM CELL TRANSPLANT
     Dosage: 1 MG, 2X/DAY
     Route: 048
     Dates: start: 20130206
  4. PROGRAF [Suspect]
     Dosage: 0.5 MG, 1X/DAY (QOD)
  5. PROGRAF [Suspect]
     Dosage: 0.5 MG, ALTERNATE DAY
     Route: 048
  6. VALTREX [Concomitant]
     Dosage: 500 MG, 1X/DAY
     Route: 048
     Dates: start: 20120401
  7. SYNTHROID [Concomitant]
     Dosage: 137 UG, 1X/DAY
     Route: 048
     Dates: start: 20110915
  8. SYNTHROID [Concomitant]
     Dosage: 175 UG, 1X/DAY
     Route: 048
  9. FOLIC ACID [Concomitant]
     Dosage: 400 UG, 1X/DAY
     Route: 048
     Dates: start: 20110801
  10. FOLIC ACID [Concomitant]
     Dosage: 400 UG, TAKE 2 TABLET DAILY
  11. VITAMIN D [Concomitant]
     Dosage: 400 IU, 2X/DAY
     Route: 048
     Dates: start: 20110801
  12. ALLEGRA [Concomitant]
     Dosage: 180 MG, 1X/DAY
     Route: 048
     Dates: start: 20110801
  13. BYSTOLIC [Concomitant]
     Dosage: 5 MG, 1X/DAY
     Route: 048
     Dates: start: 20110118
  14. BYSTOLIC [Concomitant]
     Dosage: UNK, 1 TABLET DAILY
  15. LEVOXYL [Concomitant]
     Dosage: 100 UG, 1X/DAY
     Route: 048
     Dates: start: 20110915
  16. PREVIDENT [Concomitant]
     Dosage: 1.1 %, 2X/DAY
  17. DUEXIS [Concomitant]
     Dosage: 800-26.6, TID
     Route: 048
  18. LORAZEPAM [Concomitant]
     Indication: INSOMNIA
     Dosage: 1 MG, AS NEEDED 1 TABLET BEDTIME
     Route: 048
  19. VORICONAZOLE [Concomitant]
     Dosage: 200 MG, 2X/DAY
     Route: 048
  20. AZITHROMYCIN [Concomitant]
     Dosage: 500 MG, 1X/DAY (DAILY)
     Route: 048
  21. DORIPENEM [Concomitant]
     Dosage: 500 MG, EVERY 8 HRS
     Route: 042
     Dates: end: 20130402
  22. SEPTRA DS [Concomitant]
     Dosage: UNK, BID
  23. VANCOMYCIN [Concomitant]
     Dosage: 1250 MG, 2X/DAY
     Route: 042
     Dates: end: 20130331

REACTIONS (8)
  - Off label use [Recovering/Resolving]
  - Pulmonary toxicity [Recovering/Resolving]
  - Interstitial lung disease [Recovering/Resolving]
  - Chromaturia [Recovering/Resolving]
  - Joint swelling [Recovering/Resolving]
  - Arthralgia [Recovering/Resolving]
  - Epstein-Barr virus infection [Recovered/Resolved]
  - Liver function test abnormal [Recovered/Resolved]
